FAERS Safety Report 5605729-5 (Version None)
Quarter: 2008Q1

REPORT INFORMATION
  Report Type: 
  Country: None (occurrence: None)
  Receive Date: 20080129
  Receipt Date: 20080116
  Transmission Date: 20080703
  Serious: Yes (Hospitalization)
  Sender: FDA-Public Use
  Company Number: CA-ELI_LILLY_AND_COMPANY-CA200801003491

PATIENT
  Age: 64 Year
  Sex: Female

DRUGS (14)
  1. FORTEO [Suspect]
     Indication: OSTEOPOROSIS
     Dosage: 20 UG, DAILY (1/D)
     Route: 058
     Dates: start: 20071013, end: 20080104
  2. ALTACE [Concomitant]
  3. ADALAT CC [Concomitant]
  4. DIOVAN [Concomitant]
  5. WELLBUTRIN [Concomitant]
  6. ESTROGEL [Concomitant]
  7. PROVERA [Concomitant]
  8. LOSEC I.V. [Concomitant]
  9. LASIX [Concomitant]
  10. VOLTAREN                                /SCH/ [Concomitant]
  11. PIMOZIDE [Concomitant]
  12. PRAVASTATIN [Concomitant]
  13. PREDNISONE TAB [Concomitant]
  14. LORAZEPAM [Concomitant]

REACTIONS (2)
  - CHRONIC OBSTRUCTIVE PULMONARY DISEASE [None]
  - DYSPNOEA [None]
